FAERS Safety Report 8536306-4 (Version None)
Quarter: 2012Q3

REPORT INFORMATION
  Report Type: 
  Country: None (occurrence: None)
  Receive Date: 20120725
  Receipt Date: 20120718
  Transmission Date: 20120928
  Serious: Yes (Other)
  Sender: FDA-Public Use
  Company Number: GB-JNJFOC-20120710534

PATIENT
  Sex: Male

DRUGS (2)
  1. DAKTACORT [Suspect]
     Route: 061
  2. DAKTACORT [Suspect]
     Indication: PRODUCT USED FOR UNKNOWN INDICATION
     Route: 061

REACTIONS (1)
  - ADVERSE EVENT [None]
